FAERS Safety Report 15066658 (Version 1)
Quarter: 2018Q2

REPORT INFORMATION
  Report Type: Spontaneous
  Country: US (occurrence: US)
  Receive Date: 20180626
  Receipt Date: 20180626
  Transmission Date: 20180711
  Serious: Yes (Hospitalization, Other)
  Sender: FDA-Public Use
  Company Number: US-APOTEX-2018AP016219

PATIENT
  Sex: Female

DRUGS (2)
  1. PAXIL CR [Suspect]
     Active Substance: PAROXETINE HYDROCHLORIDE
     Indication: ANXIETY
     Dosage: 20 MG, QD
     Route: 048
     Dates: start: 2003
  2. PAROXETINE HYDROCHLORIDE. [Suspect]
     Active Substance: PAROXETINE HYDROCHLORIDE
     Indication: ANXIETY
     Dosage: UNK, UNKNOWN
     Route: 065

REACTIONS (7)
  - Dysmenorrhoea [Not Recovered/Not Resolved]
  - Blood count abnormal [Unknown]
  - Deep vein thrombosis [Unknown]
  - Thrombosis [Unknown]
  - Menstrual disorder [Unknown]
  - Premature menopause [Unknown]
  - Menopause [Not Recovered/Not Resolved]

NARRATIVE: CASE EVENT DATE: 2003
